FAERS Safety Report 20350578 (Version 1)
Quarter: 2022Q1

REPORT INFORMATION
  Report Type: Spontaneous
  Country: US (occurrence: US)
  Receive Date: 20220119
  Receipt Date: 20220119
  Transmission Date: 20220423
  Serious: No
  Sender: FDA-Public Use
  Company Number: US-SA-SAC20220117000048

PATIENT
  Sex: Female

DRUGS (1)
  1. DUPIXENT [Suspect]
     Active Substance: DUPILUMAB
     Indication: Dermatitis atopic
     Dosage: 300 MG, Q2W
     Route: 058
     Dates: start: 20220103

REACTIONS (4)
  - Dry skin [Unknown]
  - Skin haemorrhage [Unknown]
  - Eczema [Unknown]
  - Skin fissures [Unknown]
